FAERS Safety Report 24718139 (Version 1)
Quarter: 2024Q4

REPORT INFORMATION
  Report Type: Spontaneous
  Country: US (occurrence: None)
  Receive Date: 20241209
  Receipt Date: 20241209
  Transmission Date: 20250114
  Serious: Yes (Death)
  Sender: Public
  Company Number: None

PATIENT
  Age: 73 Year
  Sex: Female
  Weight: 67.5 kg

DRUGS (1)
  1. ADBRY [Suspect]
     Active Substance: TRALOKINUMAB-LDRM
     Indication: Eczema

REACTIONS (3)
  - Cutaneous T-cell lymphoma recurrent [None]
  - Disease progression [None]
  - Disease complication [None]
